FAERS Safety Report 19270782 (Version 1)
Quarter: 2021Q2

REPORT INFORMATION
  Report Type: Report from Study
  Country: FR (occurrence: FR)
  Receive Date: 20210518
  Receipt Date: 20210518
  Transmission Date: 20210717
  Serious: Yes (Hospitalization)
  Sender: FDA-Public Use
  Company Number: FR-ROCHE-2829016

PATIENT
  Age: 73 Year
  Sex: Male
  Weight: 72 kg

DRUGS (4)
  1. ATEZOLIZUMAB. [Suspect]
     Active Substance: ATEZOLIZUMAB
     Indication: BLADDER CANCER
     Route: 041
     Dates: start: 20201223, end: 20210318
  2. BCG [Suspect]
     Active Substance: BCG VACCINE
     Indication: BLADDER CANCER
     Route: 043
     Dates: start: 20201223, end: 20210408
  3. EZETROL [Concomitant]
     Active Substance: EZETIMIBE
     Indication: MYOCARDIAL ISCHAEMIA
     Route: 048
  4. COAPROVEL [Concomitant]
     Active Substance: HYDROCHLOROTHIAZIDE\IRBESARTAN
     Indication: MYOCARDIAL ISCHAEMIA
     Route: 048

REACTIONS (1)
  - Nephropathy [Not Recovered/Not Resolved]

NARRATIVE: CASE EVENT DATE: 20210111
